FAERS Safety Report 8861559 (Version 1)
Quarter: 2012Q4

REPORT INFORMATION
  Report Type: Spontaneous
  Country: US (occurrence: None)
  Receive Date: 20121022
  Receipt Date: 20121022
  Transmission Date: 20130627
  Serious: Yes (Death)
  Sender: FDA-Public Use
  Company Number: JPI-P-025630

PATIENT
  Age: 69 Year
  Sex: Female

DRUGS (2)
  1. XYREM [Suspect]
     Indication: INSOMNIA
     Dosage: (Unknown), Oral
     Route: 048
     Dates: start: 20040729
  2. XYREM [Suspect]
     Indication: INSOMNIA
     Dosage: 10 gm (2.5 gm, 4 in 1 D), Oral
     Route: 048
     Dates: end: 20120917

REACTIONS (2)
  - Arteriovenous malformation [None]
  - Sudden death [None]
